FAERS Safety Report 9280882 (Version 3)
Quarter: 2013Q4

REPORT INFORMATION
  Report Type: Spontaneous
  Country: US (occurrence: US)
  Receive Date: 20130509
  Receipt Date: 20131031
  Transmission Date: 20140711
  Serious: Yes (Other)
  Sender: FDA-Public Use
  Company Number: US-BAYER-2013-056065

PATIENT
  Age: 27 Year
  Sex: Female
  Weight: 78.91 kg

DRUGS (5)
  1. MIRENA [Suspect]
     Indication: CONTRACEPTION
     Dosage: 20 MCG/24HR, CONT
     Route: 015
     Dates: start: 200607, end: 201201
  2. MIRENA [Suspect]
     Indication: CONTRACEPTION
     Dosage: 20 MCG/24HR, CONT
     Route: 015
     Dates: start: 201202
  3. VALTREX [Concomitant]
     Dosage: P.R.N.
  4. MULTIVITAMIN [Concomitant]
     Dosage: 1 TABLET DAILY
     Route: 048
  5. VITAMIN D3 [Concomitant]
     Dosage: 1 TABLET DAILY
     Route: 048

REACTIONS (7)
  - Embedded device [None]
  - Endometriosis [None]
  - Device misuse [None]
  - Injury [None]
  - Device difficult to use [None]
  - Procedural pain [None]
  - Abdominal pain lower [None]
